FAERS Safety Report 5361940-2 (Version None)
Quarter: 2007Q2

REPORT INFORMATION
  Report Type: 
  Country: None (occurrence: None)
  Receive Date: 20070619
  Receipt Date: 20070613
  Transmission Date: 20071010
  Serious: Yes (Hospitalization)
  Sender: FDA-Public Use
  Company Number: DK-AVENTIS-200712956EU

PATIENT
  Age: 67 Year
  Sex: Male

DRUGS (14)
  1. ENOXAPARIN SODIUM [Suspect]
     Indication: THROMBOSIS PROPHYLAXIS
     Route: 058
     Dates: start: 20060516, end: 20060529
  2. COVERSYL                           /00790701/ [Concomitant]
     Indication: HYPERTENSION
     Dates: start: 20060306
  3. AMARYL [Concomitant]
     Indication: DIABETES MELLITUS
     Dates: start: 20060306
  4. GLUCOPHAGE [Concomitant]
     Indication: DIABETES MELLITUS
     Dates: start: 20060306
  5. DOLOL [Concomitant]
     Indication: PAIN
     Dates: start: 20060306
  6. VITAMINS NOS [Concomitant]
     Indication: VITAMIN A
     Dates: start: 20060516, end: 20060530
  7. PANTOLOC                           /01263201/ [Concomitant]
     Indication: PROPHYLAXIS
     Dates: start: 20060516, end: 20060530
  8. MAGNESIUM SULFATE [Concomitant]
     Indication: CONSTIPATION
     Dates: start: 20060516, end: 20060522
  9. MAGNESIUM SULFATE [Concomitant]
     Indication: PROPHYLAXIS
     Dates: start: 20060516, end: 20060522
  10. IBUMETIN [Concomitant]
     Indication: PAIN
     Dates: start: 20060516, end: 20060530
  11. MAGNYL [Concomitant]
     Indication: THROMBOSIS PROPHYLAXIS
     Dates: start: 20060306, end: 20060508
  12. OXYCONTIN [Concomitant]
     Indication: PAIN
     Dates: start: 20060529, end: 20060530
  13. OXYCODON [Concomitant]
     Indication: PAIN
     Dosage: DOSE: 5-10
     Dates: start: 20060530
  14. OXYNORM [Concomitant]
     Dates: start: 20060522

REACTIONS (1)
  - WOUND SECRETION [None]
